FAERS Safety Report 6268300-0 (Version None)
Quarter: 2009Q3

REPORT INFORMATION
  Report Type: 
  Country: None (occurrence: None)
  Receive Date: 20090715
  Receipt Date: 20090708
  Transmission Date: 20100115
  Serious: Yes (Hospitalization, Other)
  Sender: FDA-Public Use
  Company Number: US-ELI_LILLY_AND_COMPANY-US200904002463

PATIENT
  Sex: Female
  Weight: 67.574 kg

DRUGS (14)
  1. FORTEO [Suspect]
     Indication: OSTEOPOROSIS
     Dosage: 20 UG, DAILY (1/D)
     Dates: start: 20080101
  2. ARTANE [Concomitant]
  3. STELAZINE [Concomitant]
  4. VALIUM [Concomitant]
  5. PLAVIX [Concomitant]
  6. RENAPRIL [Concomitant]
  7. COREG [Concomitant]
  8. POTASSIUM CHLORIDE [Concomitant]
  9. LASIX [Concomitant]
  10. IRON [Concomitant]
  11. ASPIRIN [Concomitant]
  12. MULTI-VIT [Concomitant]
  13. CALCIUM CITRATE [Concomitant]
  14. ANTIHYPERTENSIVES [Concomitant]

REACTIONS (3)
  - COORDINATION ABNORMAL [None]
  - FALL [None]
  - HIP FRACTURE [None]
